FAERS Safety Report 13345739 (Version 4)
Quarter: 2017Q2

REPORT INFORMATION
  Report Type: Report from Study
  Country: US (occurrence: US)
  Receive Date: 20170317
  Receipt Date: 20170511
  Transmission Date: 20170830
  Serious: Yes (Other)
  Sender: FDA-Public Use
  Company Number: US-PFIZER INC-2017108477

PATIENT
  Age: 61 Year
  Sex: Female

DRUGS (2)
  1. IBRANCE [Suspect]
     Active Substance: PALBOCICLIB
     Dosage: 125 MG, CYCLIC [DAILY: 3 WEEKS ON/1 WEEK OFF]
     Route: 048
     Dates: start: 20170216, end: 20170424
  2. IBRANCE [Suspect]
     Active Substance: PALBOCICLIB
     Indication: BREAST CANCER
     Dosage: 125 MG, CYCLIC (DAILY; 3 WEEKS ON/1 WEEK OFF)
     Route: 048
     Dates: start: 20170206

REACTIONS (5)
  - Fatigue [Not Recovered/Not Resolved]
  - Bone marrow failure [Not Recovered/Not Resolved]
  - White blood cell count decreased [Unknown]
  - Neoplasm progression [Unknown]
  - Irritable bowel syndrome [Recovering/Resolving]
